FAERS Safety Report 8007077-5 (Version None)
Quarter: 2011Q4

REPORT INFORMATION
  Report Type: 
  Country: None (occurrence: None)
  Receive Date: 20111123
  Receipt Date: 20110914
  Transmission Date: 20120403
  Serious: No
  Sender: FDA-Public Use
  Company Number: 331124

PATIENT
  Age: 63 Year
  Sex: Female

DRUGS (4)
  1. VICTOZA [Suspect]
     Indication: TYPE 2 DIABETES MELLITUS
     Dosage: , SUBCUTANEOUS
     Route: 058
  2. LEVEMIR [Concomitant]
  3. ZOCOR [Concomitant]
  4. APIDRA [Concomitant]

REACTIONS (6)
  - NAUSEA [None]
  - ABDOMINAL DISTENSION [None]
  - VOMITING [None]
  - DECREASED APPETITE [None]
  - DYSPEPSIA [None]
  - DIARRHOEA [None]
